APPROVED DRUG PRODUCT: MPI KRYPTON 81M GENERATOR
Active Ingredient: KRYPTON, KR-81M
Strength: N/A
Dosage Form/Route: GAS;INHALATION
Application: N018088 | Product #001
Applicant: GE HEALTHCARE
Approved: Approved Prior to Jan 1, 1982 | RLD: No | RS: No | Type: DISCN